FAERS Safety Report 17173299 (Version 1)
Quarter: 2019Q4

REPORT INFORMATION
  Report Type: Spontaneous
  Country: US (occurrence: US)
  Receive Date: 20191219
  Receipt Date: 20191219
  Transmission Date: 20200122
  Serious: Yes (Other)
  Sender: FDA-Public Use
  Company Number: US-SUNOVION-2019SUN005459

PATIENT
  Sex: Female

DRUGS (2)
  1. LATUDA [Suspect]
     Active Substance: LURASIDONE HYDROCHLORIDE
     Dosage: 120 MG, QD
     Route: 048
  2. WELLBUTRIN [Suspect]
     Active Substance: BUPROPION HYDROCHLORIDE
     Dosage: UNK
     Route: 065

REACTIONS (8)
  - Suicidal ideation [Unknown]
  - Weight increased [Unknown]
  - Crying [Unknown]
  - Seizure [Unknown]
  - Depression [Unknown]
  - Drug ineffective [Unknown]
  - Long QT syndrome [Unknown]
  - Anxiety [Unknown]
